FAERS Safety Report 9398176 (Version 1)
Quarter: 2013Q3

REPORT INFORMATION
  Report Type: Spontaneous
  Country: US (occurrence: US)
  Receive Date: 20130712
  Receipt Date: 20130712
  Transmission Date: 20140515
  Serious: No
  Sender: FDA-Public Use
  Company Number: US-GLAXOSMITHKLINE-A0991599A

PATIENT
  Age: 86 Year
  Sex: Female
  Weight: 50 kg

DRUGS (10)
  1. FLOVENT [Suspect]
     Dosage: 2PUFF TWICE PER DAY
     Route: 055
     Dates: start: 20111129
  2. BENAZEPRIL [Concomitant]
     Indication: BLOOD PRESSURE
     Dosage: 2TAB PER DAY
     Route: 048
     Dates: start: 20060622
  3. FELODIPINE [Concomitant]
     Indication: BLOOD PRESSURE
     Dosage: 1TAB PER DAY
     Route: 048
     Dates: start: 20060622
  4. CLONIDINE [Concomitant]
     Indication: BLOOD PRESSURE
     Dosage: 1TAB TWICE PER DAY
     Route: 048
     Dates: start: 20120605
  5. METOPROLOL SUCCINATE [Concomitant]
     Indication: HEART RATE
     Dosage: 1TAB PER DAY
     Route: 048
     Dates: start: 20120605
  6. PRO-AIR [Concomitant]
     Indication: CHRONIC OBSTRUCTIVE PULMONARY DISEASE
     Dosage: 2PUFF FOUR TIMES PER DAY
     Route: 055
     Dates: start: 20070201
  7. FUROSEMIDE [Concomitant]
     Indication: OEDEMA
     Dosage: 1TAB TWICE PER DAY
     Route: 048
     Dates: start: 20041220
  8. TRAMADOL [Concomitant]
     Indication: PAIN
     Dosage: 50MG AS REQUIRED
     Route: 048
     Dates: start: 20091109
  9. MINOXIDIL [Concomitant]
     Dosage: 2TAB TWICE PER DAY
     Route: 048
     Dates: start: 20091009
  10. ATENOLOL [Concomitant]
     Indication: HEART RATE
     Dosage: 1TAB TWICE PER DAY
     Route: 048
     Dates: start: 20020110, end: 20120610

REACTIONS (12)
  - Throat irritation [Recovered/Resolved]
  - Stomatitis [Recovered/Resolved]
  - Nasal congestion [Recovered/Resolved]
  - Dysgeusia [Recovered/Resolved]
  - Rhinorrhoea [Recovered/Resolved]
  - Glossitis [Recovered/Resolved]
  - Oropharyngeal pain [Recovered/Resolved]
  - Nasal discomfort [Recovered/Resolved]
  - Product quality issue [Recovered/Resolved]
  - Accidental exposure to product [Recovered/Resolved]
  - Nasal discharge discolouration [Recovered/Resolved]
  - Insomnia [Recovered/Resolved]
